FAERS Safety Report 9086176 (Version 1)
Quarter: 2013Q1

REPORT INFORMATION
  Report Type: Spontaneous
  Country: AU (occurrence: AU)
  Receive Date: 20130131
  Receipt Date: 20130131
  Transmission Date: 20140127
  Serious: Yes (Other)
  Sender: FDA-Public Use
  Company Number: AU-PFIZER INC-2013032449

PATIENT
  Sex: 0

DRUGS (4)
  1. DILANTIN [Suspect]
     Dosage: 200MG IN THE MORNING, 100MG AT MIDDAY AND 200MG AT NIGHT
  2. CITALOPRAM [Concomitant]
  3. CARBAMAZEPINE [Concomitant]
  4. BENZODIAZEPINE [Concomitant]

REACTIONS (1)
  - Toxicity to various agents [Unknown]
